FAERS Safety Report 6631616-X (Version None)
Quarter: 2010Q1

REPORT INFORMATION
  Report Type: 
  Country: None (occurrence: None)
  Receive Date: 20100312
  Receipt Date: 20100301
  Transmission Date: 20100710
  Serious: Yes (Other)
  Sender: FDA-Public Use
  Company Number: FR-PFIZER INC-2010025904

PATIENT
  Sex: Female
  Weight: 83 kg

DRUGS (1)
  1. AROMASIN [Suspect]
     Indication: BREAST CANCER
     Dosage: UNK
     Dates: end: 20100222

REACTIONS (3)
  - HYPERCHOLESTEROLAEMIA [None]
  - OSTEOPENIA [None]
  - OSTEOPOROSIS [None]
